FAERS Safety Report 9189097 (Version 2)
Quarter: 2013Q1

REPORT INFORMATION
  Report Type: Spontaneous
  Country: AT (occurrence: AT)
  Receive Date: 20130326
  Receipt Date: 20130329
  Transmission Date: 20140127
  Serious: Yes (Death)
  Sender: FDA-Public Use
  Company Number: AT-MERCK-1303AUT010787

PATIENT
  Age: 56 Year
  Sex: Male

DRUGS (9)
  1. NOXAFIL [Suspect]
     Indication: ANTIFUNGAL PROPHYLAXIS
     Dosage: UNK
     Route: 048
     Dates: start: 2010, end: 2010
  2. CANCIDAS [Suspect]
     Indication: ANTIFUNGAL TREATMENT
     Dosage: UNK
     Dates: start: 2010
  3. CYCLOPHOSPHAMIDE [Concomitant]
     Indication: CHEMOTHERAPY
  4. DOXORUBICIN [Concomitant]
     Indication: CHEMOTHERAPY
  5. VINCRISTINE SULFATE [Concomitant]
     Indication: CHEMOTHERAPY
  6. PREDNISONE [Concomitant]
     Indication: CHEMOTHERAPY
  7. ALEMTUZUMAB [Concomitant]
  8. VALGANCICLOVIR HYDROCHLORIDE [Concomitant]
     Indication: CYTOMEGALOVIRUS INFECTION
  9. VORICONAZOLE [Concomitant]

REACTIONS (2)
  - Systemic mycosis [Fatal]
  - Drug ineffective [Not Recovered/Not Resolved]
